FAERS Safety Report 4945489-4 (Version None)
Quarter: 2006Q1

REPORT INFORMATION
  Report Type: 
  Country: None (occurrence: None)
  Receive Date: 20060315
  Receipt Date: 20060315
  Transmission Date: 20060701
  Serious: No
  Sender: FDA-Public Use
  Company Number: None

PATIENT
  Sex: Male
  Weight: 88.4514 kg

DRUGS (2)
  1. SUDAFED PE 10 MG PFIZER [Suspect]
  2. SUDAFED PFIZER [Suspect]

REACTIONS (1)
  - MEDICATION ERROR [None]
